FAERS Safety Report 4484856-2 (Version None)
Quarter: 2004Q4

REPORT INFORMATION
  Report Type: 
  Country: None (occurrence: None)
  Receive Date: 20041025
  Receipt Date: 20041019
  Transmission Date: 20050328
  Serious: Yes (Hospitalization)
  Sender: FDA-Public Use
  Company Number: ZA-MERCK-0410ZAF00023

PATIENT
  Age: 75 Year
  Sex: Male

DRUGS (1)
  1. VIOXX [Suspect]
     Indication: BACK PAIN
     Route: 048
     Dates: start: 20040201, end: 20040801

REACTIONS (3)
  - CORONARY ARTERY DISEASE [None]
  - DIZZINESS [None]
  - SINUS BRADYCARDIA [None]
